FAERS Safety Report 10747741 (Version 1)
Quarter: 2015Q1

REPORT INFORMATION
  Report Type: Spontaneous
  Country: ZA (occurrence: None)
  Receive Date: 20150127
  Receipt Date: 20150127
  Transmission Date: 20150721
  Serious: Yes (Death)
  Sender: FDA-Public Use
  Company Number: FK201500354

PATIENT
  Age: 06 Month

DRUGS (1)
  1. POTASSIUM CHLORIDE. [Suspect]
     Active Substance: POTASSIUM CHLORIDE
     Indication: PRODUCT USED FOR UNKNOWN INDICATION
     Dosage: (NOT OTHERWISE SPECIFIED)
     Route: 042
     Dates: start: 20150109, end: 20150109

REACTIONS (3)
  - Medication error [None]
  - Wrong drug administered [None]
  - Accidental exposure to product [None]

NARRATIVE: CASE EVENT DATE: 20150109
